FAERS Safety Report 17542447 (Version 3)
Quarter: 2020Q1

REPORT INFORMATION
  Report Type: Report from Study
  Country: US (occurrence: US)
  Receive Date: 20200314
  Receipt Date: 20200331
  Transmission Date: 20200409
  Serious: Yes (Hospitalization)
  Sender: FDA-Public Use
  Company Number: US-ACTELION-A-US2018-183772

PATIENT
  Age: 68 Year
  Sex: Female

DRUGS (1)
  1. OPSUMIT [Suspect]
     Active Substance: MACITENTAN
     Indication: PULMONARY ARTERIAL HYPERTENSION
     Dosage: 10 MG, QD
     Route: 048
     Dates: start: 20181119

REACTIONS (9)
  - Gastroenteritis viral [Unknown]
  - Muscle spasms [Unknown]
  - Rehabilitation therapy [Unknown]
  - Nasopharyngitis [Not Recovered/Not Resolved]
  - Road traffic accident [Unknown]
  - Diarrhoea [Not Recovered/Not Resolved]
  - Pain [Unknown]
  - Spinal operation [Unknown]
  - Adverse event [Unknown]

NARRATIVE: CASE EVENT DATE: 20191002
